FAERS Safety Report 5379290-7 (Version None)
Quarter: 2007Q3

REPORT INFORMATION
  Report Type: 
  Country: None (occurrence: None)
  Receive Date: 20070705
  Receipt Date: 20070626
  Transmission Date: 20080115
  Serious: Yes (Hospitalization)
  Sender: FDA-Public Use
  Company Number: AU-SHR-AU-2007-023594

PATIENT
  Age: 41 Year
  Sex: Female

DRUGS (5)
  1. MIRENA [Suspect]
     Dosage: 20 A?G/DAY, CONT
     Route: 015
     Dates: start: 20070301, end: 20070515
  2. KARVEZIDE [Concomitant]
  3. FEFOL [Concomitant]
  4. CALTRATE [Concomitant]
  5. IMURAN [Concomitant]

REACTIONS (4)
  - DISCOMFORT [None]
  - GENERALISED OEDEMA [None]
  - PULMONARY OEDEMA [None]
  - VAGINAL HAEMORRHAGE [None]
